FAERS Safety Report 11190930 (Version 2)
Quarter: 2015Q3

REPORT INFORMATION
  Report Type: Spontaneous
  Country: US (occurrence: US)
  Receive Date: 20150615
  Receipt Date: 20150714
  Transmission Date: 20151125
  Serious: No
  Sender: FDA-Public Use
  Company Number: US-BAYER-2015-345054

PATIENT
  Age: 49 Year
  Sex: Male
  Weight: 84 kg

DRUGS (4)
  1. CLARITIN [Suspect]
     Active Substance: LORATADINE
     Indication: SEASONAL ALLERGY
     Dosage: 1 DF, QD
     Route: 048
     Dates: start: 20150525, end: 20150531
  2. VITAMIN C [Concomitant]
     Active Substance: ASCORBIC ACID
     Dosage: UNK
  3. MULTIVITAMIN [Concomitant]
     Active Substance: VITAMINS
     Dosage: UNK
  4. LACTAID [Concomitant]
     Active Substance: LACTASE
     Dosage: UNK

REACTIONS (8)
  - Feeling abnormal [Unknown]
  - Dizziness [Recovered/Resolved]
  - Epistaxis [Unknown]
  - Dry eye [Recovered/Resolved]
  - Ocular hyperaemia [Unknown]
  - Asthenia [Unknown]
  - Product size issue [None]
  - Headache [Unknown]

NARRATIVE: CASE EVENT DATE: 20150526
